FAERS Safety Report 5770956-3 (Version None)
Quarter: 2008Q2

REPORT INFORMATION
  Report Type: 
  Country: None (occurrence: None)
  Receive Date: 20080613
  Receipt Date: 20080528
  Transmission Date: 20081010
  Serious: No
  Sender: FDA-Public Use
  Company Number: US-ABBOTT-08P-163-0452802-00

PATIENT
  Sex: Female
  Weight: 58.112 kg

DRUGS (6)
  1. HUMIRA [Suspect]
     Indication: CROHN'S DISEASE
     Route: 058
     Dates: start: 20080507, end: 20080507
  2. HUMIRA [Suspect]
     Route: 058
     Dates: start: 20080521, end: 20080521
  3. HUMIRA [Suspect]
     Route: 058
  4. ENTECORT [Concomitant]
     Indication: CROHN'S DISEASE
     Route: 048
  5. RIFAXIMIN [Concomitant]
     Indication: CROHN'S DISEASE
     Route: 048
  6. MESALAMINE [Concomitant]
     Indication: CROHN'S DISEASE

REACTIONS (3)
  - CONTUSION [None]
  - INJECTION SITE PAIN [None]
  - MOBILITY DECREASED [None]
